FAERS Safety Report 7127824-4 (Version None)
Quarter: 2010Q4

REPORT INFORMATION
  Report Type: 
  Country: None (occurrence: None)
  Receive Date: 20101130
  Receipt Date: 20101116
  Transmission Date: 20110411
  Serious: Yes (Other)
  Sender: FDA-Public Use
  Company Number: US-CELGENEUS-163-21880-10112013

PATIENT
  Age: 59 Year
  Sex: Female

DRUGS (11)
  1. REVLIMID [Suspect]
     Route: 048
  2. FLUDARABINE [Suspect]
     Route: 051
  3. FLUDARABINE [Suspect]
     Route: 051
  4. RITUXIMAB [Suspect]
     Route: 065
  5. TRIMETHOPRIM + SULFAMETHOXAZOLE [Concomitant]
     Indication: INFECTION
     Route: 065
  6. TRIMETHOPRIM + SULFAMETHOXAZOLE [Concomitant]
     Indication: PROPHYLAXIS
  7. ACYCLOVIR SODIUM [Concomitant]
     Indication: INFECTION
     Route: 065
  8. ACYCLOVIR SODIUM [Concomitant]
     Indication: PROPHYLAXIS
  9. ASPIRIN [Concomitant]
     Route: 065
  10. ALLOPURINOL [Concomitant]
     Route: 065
  11. HYDRATION [Concomitant]
     Route: 051

REACTIONS (4)
  - NEUTROPENIA [None]
  - PALMAR-PLANTAR ERYTHRODYSAESTHESIA SYNDROME [None]
  - RASH [None]
  - TUMOUR FLARE [None]
